FAERS Safety Report 6815134-1 (Version None)
Quarter: 2010Q3

REPORT INFORMATION
  Report Type: 
  Country: None (occurrence: None)
  Receive Date: 20100702
  Receipt Date: 20100628
  Transmission Date: 20110219
  Serious: Yes (Death, Hospitalization)
  Sender: FDA-Public Use
  Company Number: PHHY2010US31323

PATIENT
  Sex: Female
  Weight: 54.43 kg

DRUGS (1)
  1. EXJADE [Suspect]
     Dosage: 1000 MG/DAY
     Route: 048
     Dates: start: 20100112

REACTIONS (1)
  - DEATH [None]
